FAERS Safety Report 8476919 (Version 2)
Quarter: 2013Q4

REPORT INFORMATION
  Report Type: Spontaneous
  Country: US (occurrence: US)
  Receive Date: 20120326
  Receipt Date: 20131111
  Transmission Date: 20140711
  Serious: Yes (Death, Other)
  Sender: FDA-Public Use
  Company Number: US-INCYTE CORPORATION-2012IN000413

PATIENT
  Sex: Female

DRUGS (1)
  1. JAKAFI [Suspect]
     Dosage: NOT SPECIFIED

REACTIONS (3)
  - Portal hypertension [Fatal]
  - Varices oesophageal [Unknown]
  - Oesophageal varices haemorrhage [Unknown]
